FAERS Safety Report 7382031-5 (Version None)
Quarter: 2011Q1

REPORT INFORMATION
  Report Type: 
  Country: None (occurrence: None)
  Receive Date: 20110329
  Receipt Date: 20110324
  Transmission Date: 20110831
  Serious: Yes (Hospitalization, Other)
  Sender: FDA-Public Use
  Company Number: US-PFIZER INC-2011061803

PATIENT
  Sex: Female

DRUGS (2)
  1. REBIF [Suspect]
     Dosage: 44 UG, THREE IN ONE WEEK
     Route: 058
     Dates: start: 20101201, end: 20110211
  2. LYRICA [Suspect]
     Dosage: UNK

REACTIONS (6)
  - URINE OUTPUT DECREASED [None]
  - FALL [None]
  - WEIGHT INCREASED [None]
  - CELLULITIS [None]
  - FLUID RETENTION [None]
  - PERICARDIAL EFFUSION [None]
